FAERS Safety Report 16972917 (Version 5)
Quarter: 2021Q1

REPORT INFORMATION
  Report Type: Spontaneous
  Country: US (occurrence: US)
  Receive Date: 20191030
  Receipt Date: 20210113
  Transmission Date: 20210419
  Serious: No
  Sender: FDA-Public Use
  Company Number: US-TEVA-2019-US-1127313

PATIENT
  Age: 44 Year
  Sex: Female

DRUGS (2)
  1. AJOVY [Suspect]
     Active Substance: FREMANEZUMAB-VFRM
  2. AJOVY [Suspect]
     Active Substance: FREMANEZUMAB-VFRM
     Dosage: SWITCH AT THE 11 MONTH

REACTIONS (3)
  - Intentional product misuse [Unknown]
  - Migraine [Unknown]
  - Therapeutic response shortened [Unknown]
